FAERS Safety Report 8301582-X (Version None)
Quarter: 2012Q2

REPORT INFORMATION
  Report Type: 
  Country: None (occurrence: None)
  Receive Date: 20120420
  Receipt Date: 20120405
  Transmission Date: 20120825
  Serious: Yes (Other)
  Sender: FDA-Public Use
  Company Number: DE-ROCHE-1042608

PATIENT
  Sex: Female

DRUGS (3)
  1. AVASTIN [Suspect]
     Route: 042
     Dates: start: 20100805, end: 20110901
  2. AVASTIN [Suspect]
     Route: 042
     Dates: start: 20110901, end: 20120125
  3. AVASTIN [Suspect]
     Indication: BREAST CANCER METASTATIC
     Route: 042
     Dates: start: 20100421, end: 20100623

REACTIONS (2)
  - VISION BLURRED [None]
  - EYE INJURY [None]
